FAERS Safety Report 8870410 (Version 1)
Quarter: 2012Q4

REPORT INFORMATION
  Report Type: 
  Country: US (occurrence: US)
  Receive Date: 20121026
  Receipt Date: 20121026
  Transmission Date: 20130627
  Serious: No
  Sender: FDA-Public Use
  Company Number: US-AMGEN-USASP2012043460

PATIENT
  Age: 61 Year
  Sex: Female
  Weight: 81.63 kg

DRUGS (7)
  1. ENBREL [Suspect]
     Indication: PRODUCT USED FOR UNKNOWN INDICATION
     Dosage: 50 mg, qwk
     Route: 058
  2. CENTRUM                            /00554501/ [Concomitant]
     Dosage: UNK
  3. HYZAAR [Concomitant]
     Dosage: 100-12.5
  4. LOVASTATIN [Concomitant]
     Dosage: 10 mg, UNK
  5. ADVIL                              /00044201/ [Concomitant]
     Dosage: 200 mg, UNK
  6. ZINC [Concomitant]
     Dosage: 30 mg, UNK
  7. CRANBERRY                          /01512301/ [Concomitant]
     Dosage: UNK

REACTIONS (2)
  - Injection site reaction [Recovering/Resolving]
  - Injection site erythema [Recovering/Resolving]
